FAERS Safety Report 18291442 (Version 1)
Quarter: 2020Q3

REPORT INFORMATION
  Report Type: Spontaneous
  Country: US (occurrence: US)
  Receive Date: 20200921
  Receipt Date: 20200921
  Transmission Date: 20201103
  Serious: No
  Sender: FDA-Public Use
  Company Number: US-AMNEAL PHARMACEUTICALS-2020-AMRX-00414

PATIENT
  Age: 45 Year
  Sex: Female

DRUGS (1)
  1. NORETHINDRONE. [Suspect]
     Active Substance: NORETHINDRONE
     Indication: PRODUCT USED FOR UNKNOWN INDICATION
     Dosage: 0.35 MILLIGRAM, DAILY
     Route: 065
     Dates: start: 201912, end: 20200307

REACTIONS (6)
  - Menorrhagia [Recovering/Resolving]
  - Product substitution issue [Unknown]
  - Migraine [Recovered/Resolved]
  - Muscle spasms [Unknown]
  - Impaired quality of life [Unknown]
  - Metrorrhagia [Unknown]

NARRATIVE: CASE EVENT DATE: 201912
